FAERS Safety Report 6434949-5 (Version None)
Quarter: 2009Q4

REPORT INFORMATION
  Report Type: 
  Country: None (occurrence: None)
  Receive Date: 20091110
  Receipt Date: 20091102
  Transmission Date: 20100525
  Serious: Yes (Other)
  Sender: FDA-Public Use
  Company Number: DE-JNJFOC-20091100610

PATIENT
  Sex: Female

DRUGS (1)
  1. RISPERDAL [Suspect]
     Indication: DRUG USE FOR UNKNOWN INDICATION
     Route: 048

REACTIONS (5)
  - EXTRAPYRAMIDAL DISORDER [None]
  - INTENTIONAL OVERDOSE [None]
  - MUSCULOSKELETAL STIFFNESS [None]
  - PRESYNCOPE [None]
  - SUICIDE ATTEMPT [None]
